FAERS Safety Report 6153901-0 (Version None)
Quarter: 2009Q2

REPORT INFORMATION
  Report Type: 
  Country: None (occurrence: None)
  Receive Date: 20090414
  Receipt Date: 20071228
  Transmission Date: 20091009
  Serious: Yes (Death, Hospitalization, Other)
  Sender: FDA-Public Use
  Company Number: US-ASTRAZENECA-2006UW27759

PATIENT
  Age: 57 Year
  Sex: Male
  Weight: 70.3 kg

DRUGS (65)
  1. SEROQUEL [Suspect]
     Indication: DEPRESSION
     Route: 048
     Dates: start: 20050101, end: 20060708
  2. SEROQUEL [Suspect]
     Indication: INSOMNIA
     Route: 048
     Dates: start: 20050101, end: 20060708
  3. SEROQUEL [Suspect]
     Dosage: 25 MG - 200 MG
     Route: 048
     Dates: start: 20050406
  4. SEROQUEL [Suspect]
     Dosage: 25 MG - 200 MG
     Route: 048
     Dates: start: 20050406
  5. RISPERDAL [Concomitant]
     Dates: start: 20050101
  6. ZYPREXA [Concomitant]
     Dates: start: 20050101
  7. LANTUS [Concomitant]
  8. CELLCEPT [Concomitant]
  9. RIBASPHERE [Concomitant]
  10. SULPHAMETHOXAZOLE [Concomitant]
  11. NYSTATIN [Concomitant]
  12. NORVASC [Concomitant]
  13. NEORAL [Concomitant]
  14. TRAMADOL [Concomitant]
  15. PEGASYS [Concomitant]
  16. CLONAZEP [Concomitant]
  17. URSODIOL [Concomitant]
  18. LIPITOR [Concomitant]
  19. TEMAZEPAM [Concomitant]
  20. GABAPENTIN [Concomitant]
  21. PROGRAF [Concomitant]
  22. CITALOPRAM HYDROBROMIDE [Concomitant]
  23. NOVOLOG [Concomitant]
  24. LORAZEPAM [Concomitant]
  25. COPEQUS [Concomitant]
  26. MIRTAZAPINE [Concomitant]
  27. BACTRIM [Concomitant]
  28. PROTONIX [Concomitant]
  29. NEURONTIN [Concomitant]
  30. RESTORIL [Concomitant]
  31. OXYCONTIN [Concomitant]
  32. ROBAXIN [Concomitant]
  33. PERCOCET [Concomitant]
  34. INSULIN NPH [Concomitant]
  35. MEDROL [Concomitant]
  36. FLEXERIL [Concomitant]
  37. ACTIGALL [Concomitant]
  38. KAYEXALATE [Concomitant]
  39. LEXAPRO [Concomitant]
  40. LASIX [Concomitant]
  41. NEXIUM [Concomitant]
  42. VERSED [Concomitant]
  43. VALIDOL [Concomitant]
  44. CEPHULAC [Concomitant]
  45. AQUAMEPHYTON [Concomitant]
  46. VITAMIN K TAB [Concomitant]
  47. ATIVAN [Concomitant]
  48. XANAX [Concomitant]
  49. MORPHIN [Concomitant]
  50. ALBUMIN (HUMAN) [Concomitant]
  51. HALDOL [Concomitant]
  52. FLAGYL [Concomitant]
  53. LEVAGUIN [Concomitant]
  54. PREVACID [Concomitant]
  55. NOVELIN R [Concomitant]
  56. HYDROMORPHONE HCL [Concomitant]
  57. REGLAN [Concomitant]
  58. DILAUDID [Concomitant]
  59. RETORIL [Concomitant]
  60. ULTRAM [Concomitant]
  61. NORFLEX [Concomitant]
  62. TORADEL [Concomitant]
  63. CELEXA [Concomitant]
  64. WELLBURTIN [Concomitant]
  65. CYCLOBENZAPRINE [Concomitant]

REACTIONS (37)
  - ABDOMINAL PAIN [None]
  - AGITATION [None]
  - ANXIETY [None]
  - ARTHRITIS [None]
  - ASCITES [None]
  - ASTHENIA [None]
  - BACK PAIN [None]
  - BLOOD GLUCOSE INCREASED [None]
  - COAGULOPATHY [None]
  - CONFUSIONAL STATE [None]
  - DEATH [None]
  - DEHYDRATION [None]
  - DELIRIUM [None]
  - DEPRESSION [None]
  - DIABETES MELLITUS [None]
  - DIABETIC KETOACIDOSIS [None]
  - DIARRHOEA [None]
  - DISORIENTATION [None]
  - DYSPHAGIA [None]
  - DYSPNOEA [None]
  - ECCHYMOSIS [None]
  - EXCORIATION [None]
  - FLANK PAIN [None]
  - HALLUCINATION [None]
  - HEPATIC ENCEPHALOPATHY [None]
  - HEPATIC FAILURE [None]
  - HYPERVENTILATION [None]
  - MAJOR DEPRESSION [None]
  - MEMORY IMPAIRMENT [None]
  - MENTAL STATUS CHANGES [None]
  - MUSCLE CONTRACTIONS INVOLUNTARY [None]
  - NAUSEA [None]
  - PAIN IN EXTREMITY [None]
  - RENAL FAILURE [None]
  - TACHYPHRENIA [None]
  - TREMOR [None]
  - VOMITING [None]
